FAERS Safety Report 8770660 (Version 1)
Quarter: 2012Q4

REPORT INFORMATION
  Report Type: 
  Country: FR (occurrence: FR)
  Receive Date: 20120906
  Receipt Date: 20120906
  Transmission Date: 20130627
  Serious: Yes (Other)
  Sender: FDA-Public Use
  Company Number: PHHY2010FR094802

PATIENT

DRUGS (2)
  1. NEORAL [Suspect]
     Indication: RENAL TRANSPLANT
  2. CELLCEPT [Suspect]
     Indication: IMMUNOSUPPRESSANT DRUG THERAPY

REACTIONS (1)
  - Biopsy kidney abnormal [Unknown]
